FAERS Safety Report 4556614-1 (Version None)
Quarter: 2005Q1

REPORT INFORMATION
  Report Type: 
  Country: None (occurrence: None)
  Receive Date: 20050118
  Receipt Date: 20050105
  Transmission Date: 20050727
  Serious: Yes (Other)
  Sender: FDA-Public Use
  Company Number: 2004228663US

PATIENT
  Age: 77 Year
  Sex: Male
  Weight: 63.49 kg

DRUGS (8)
  1. DETROL LA [Suspect]
     Indication: ILL-DEFINED DISORDER
     Dosage: 2 MG
  2. ACETYLSALICYLIC ACID SRT [Concomitant]
  3. CELECOXIB [Concomitant]
  4. ATENOLOL [Concomitant]
  5. HYDROCHLOROTHIAZIDE [Concomitant]
  6. QUINAPRIL HYDROCHLORIDE [Concomitant]
  7. LOVASTATIN [Concomitant]
  8. HYDROCODONE [Concomitant]

REACTIONS (12)
  - ANOREXIA [None]
  - ANURIA [None]
  - BLADDER DISTENSION [None]
  - DIVERTICULUM [None]
  - DYSURIA [None]
  - HAEMATOCHEZIA [None]
  - INCONTINENCE [None]
  - NAUSEA [None]
  - RENAL IMPAIRMENT [None]
  - URINARY RETENTION [None]
  - WEIGHT DECREASED [None]
  - WHITE BLOOD CELLS URINE POSITIVE [None]
